FAERS Safety Report 17984203 (Version 1)
Quarter: 2020Q3

REPORT INFORMATION
  Report Type: Spontaneous
  Country: US (occurrence: US)
  Receive Date: 20200706
  Receipt Date: 20200706
  Transmission Date: 20201103
  Serious: No
  Sender: FDA-Public Use
  Company Number: US-NEUROCRINE BIOSCIENCES INC.-2020NBI02139

PATIENT
  Sex: Male

DRUGS (4)
  1. CLOZARIL [Concomitant]
     Active Substance: CLOZAPINE
     Indication: SLEEP DISORDER
  2. INGREZZA [Suspect]
     Active Substance: VALBENAZINE
     Indication: TARDIVE DYSKINESIA
  3. SEROQUEL [Concomitant]
     Active Substance: QUETIAPINE FUMARATE
  4. CLOZARIL [Concomitant]
     Active Substance: CLOZAPINE
     Indication: SLEEP DISORDER

REACTIONS (1)
  - Agitation [Unknown]
